FAERS Safety Report 18089540 (Version 3)
Quarter: 2021Q1

REPORT INFORMATION
  Report Type: Spontaneous
  Country: FR (occurrence: FR)
  Receive Date: 20200730
  Receipt Date: 20210224
  Transmission Date: 20210419
  Serious: Yes (Death, Life-Threatening, Hospitalization, Other)
  Sender: FDA-Public Use
  Company Number: FR-AUROBINDO-AUR-APL-2020-036596

PATIENT
  Age: 63 Year
  Sex: Female

DRUGS (10)
  1. AMLODIPINE [Suspect]
     Active Substance: AMLODIPINE BESYLATE
     Indication: PRODUCT USED FOR UNKNOWN INDICATION
     Dosage: UNK
     Route: 065
  2. ZOLPIDEM [Suspect]
     Active Substance: ZOLPIDEM TARTRATE
     Indication: PRODUCT USED FOR UNKNOWN INDICATION
     Dosage: UNK
     Route: 065
  3. CITALOPRAM [Suspect]
     Active Substance: CITALOPRAM HYDROBROMIDE
     Indication: PRODUCT USED FOR UNKNOWN INDICATION
     Dosage: UNK
     Route: 065
  4. LYSANXIA [Suspect]
     Active Substance: PRAZEPAM
     Indication: PRODUCT USED FOR UNKNOWN INDICATION
     Dosage: 420 MILLIGRAM, 1 TOTAL
     Route: 048
  5. NORDAZEPAM [Suspect]
     Active Substance: NORDAZEPAM
     Indication: PRODUCT USED FOR UNKNOWN INDICATION
     Dosage: UNK
     Route: 065
  6. SEROPLEX [Suspect]
     Active Substance: ESCITALOPRAM OXALATE
     Indication: PRODUCT USED FOR UNKNOWN INDICATION
     Dosage: 280 MILLIGRAM, 1 TOTAL (28 TABLETS)
     Route: 048
  7. OLMESARTAN MEDOXOMIL. [Suspect]
     Active Substance: OLMESARTAN MEDOXOMIL
     Indication: PRODUCT USED FOR UNKNOWN INDICATION
     Dosage: 129 TABLETS, 1.29 G OF AMLODIPINE AND 5.16 G OF OLMESARTAN
     Route: 048
  8. ATARAX [Suspect]
     Active Substance: HYDROXYZINE HYDROCHLORIDE
     Indication: PRODUCT USED FOR UNKNOWN INDICATION
     Dosage: 700 MILLIGRAM, 1 TOTAL (28 TABLETS)
     Route: 048
  9. SEVIKAR [Suspect]
     Active Substance: AMLODIPINE BESYLATE\OLMESARTAN MEDOXOMIL
     Dosage: 6.45 GRAM, TOTAL
     Route: 048
  10. SEVIKAR [Suspect]
     Active Substance: AMLODIPINE BESYLATE\OLMESARTAN MEDOXOMIL
     Indication: PRODUCT USED FOR UNKNOWN INDICATION
     Dosage: 129 TABLETS, 1.29 G OF AMLODIPINE AND 5.16 G OF OLMESARTAN
     Route: 048

REACTIONS (20)
  - Hepatic failure [Fatal]
  - Bezoar [Fatal]
  - Multiple organ dysfunction syndrome [Fatal]
  - Metabolic acidosis [Fatal]
  - Completed suicide [Fatal]
  - Drug level increased [Fatal]
  - Acute kidney injury [Fatal]
  - Intentional overdose [Fatal]
  - Cardiogenic shock [Fatal]
  - Toxicity to various agents [Fatal]
  - Coma [Fatal]
  - Shock [Fatal]
  - Blood bicarbonate decreased [Fatal]
  - Renal failure [Fatal]
  - Overdose [Fatal]
  - Skin necrosis [Fatal]
  - Hyperlactacidaemia [Fatal]
  - Heart rate decreased [Fatal]
  - Blood pressure decreased [Fatal]
  - Gastrointestinal ischaemia [Fatal]
